FAERS Safety Report 18486028 (Version 1)
Quarter: 2020Q4

REPORT INFORMATION
  Report Type: Spontaneous
  Country: US (occurrence: US)
  Receive Date: 20201110
  Receipt Date: 20201110
  Transmission Date: 20210114
  Serious: No
  Sender: FDA-Public Use
  Company Number: US-PFIZER INC-2016409368

PATIENT
  Age: 59 Year
  Sex: Female
  Weight: 80 kg

DRUGS (19)
  1. CYMBALTA [Concomitant]
     Active Substance: DULOXETINE HYDROCHLORIDE
     Indication: PAIN
     Dosage: 1 DF, AS NEEDED (1 CAPSULE BY MOUTH TWICE A DAY)
     Route: 048
  2. VITAMIN B12 [Concomitant]
     Active Substance: CYANOCOBALAMIN
     Dosage: 1000 UG, DAILY
     Route: 048
  3. FLONASE [Concomitant]
     Active Substance: FLUTICASONE PROPIONATE
     Dosage: 100 UG, AS NEEDED (50 MCG/ACT/2 SPRAYS)
  4. VITAMIN C [Concomitant]
     Active Substance: ASCORBIC ACID
     Dosage: 500 MG, DAILY
     Route: 048
  5. LYRICA [Suspect]
     Active Substance: PREGABALIN
     Indication: PAIN
     Dosage: 100 MG, 3X/DAY (TID)
     Route: 048
  6. OMEPRAZOLE. [Concomitant]
     Active Substance: OMEPRAZOLE
     Dosage: 20 MG, DAILY
     Route: 048
  7. LYRICA [Suspect]
     Active Substance: PREGABALIN
     Indication: SLEEP DISORDER
     Dosage: 400 MG, DAILY (1 IN AM, 1 IN AFTERNOON AND 2 AT BEDTIME, FOUR TIMES A DAY)
     Route: 048
  8. OXYCODONE HYDROCHLORIDE. [Concomitant]
     Active Substance: OXYCODONE HYDROCHLORIDE
     Dosage: UNK, AS NEEDED (1-2 BY MOUTH 3-4 TIMES DAILY)
     Route: 048
  9. COLACE [Concomitant]
     Active Substance: DOCUSATE SODIUM
     Dosage: 100 MG, 1X/DAY (EVERY NIGHT)
     Route: 048
  10. PERCOCET [Concomitant]
     Active Substance: ACETAMINOPHEN\OXYCODONE HYDROCHLORIDE
     Dosage: UNK
  11. TRAMADOL. [Concomitant]
     Active Substance: TRAMADOL
     Indication: PAIN
     Dosage: 300 MG, DAILY, (2 IN THE MORNING, 2 AT NIGHT BEFORE BED, 1 AT NOON, AND 1 IN THE EVENING)
     Dates: start: 2007
  12. BACLOFEN. [Concomitant]
     Active Substance: BACLOFEN
     Dosage: UNK, AS NEEDED (1/2 TABLET BY MOUTH IN AM, 1/2 AT NOON AND 1 TAB AT BEDTIME)
     Route: 048
  13. CALCIUM/VITAMIN D/VITAMIN K [Concomitant]
     Dosage: 1 DF, 2X/DAY (CALCIUM: 500MG, VITAMIN D: 1000 UNT, VITAMIN K: 40MCG)
     Route: 048
  14. LYRICA [Suspect]
     Active Substance: PREGABALIN
     Dosage: 100 MG, 4X/DAY (ONE IN THE MORNING, ONE IN THE AFTERNOON, AND THEN 2 AT NIGHT)
  15. VOLTAREN [Concomitant]
     Active Substance: DICLOFENAC SODIUM
     Indication: PAIN
     Dosage: UNK, AS NEEDED (APPLY TO AFFECTED AREA QID)
     Route: 061
  16. CYMBALTA [Concomitant]
     Active Substance: DULOXETINE HYDROCHLORIDE
     Indication: SLEEP DISORDER
     Dosage: 60 MG, 2X/DAY
     Dates: start: 2008
  17. COLACE [Concomitant]
     Active Substance: DOCUSATE SODIUM
     Dosage: 100 MG, 2X/DAY
     Route: 048
  18. ACETAMINOPHEN. [Concomitant]
     Active Substance: ACETAMINOPHEN
     Dosage: 2 DF, AS NEEDED (DAILY) (WHEN NOT TAKING PERCOCET)
     Route: 048
  19. TYLENOL [Concomitant]
     Active Substance: ACETAMINOPHEN
     Indication: PAIN
     Dosage: 500 MG, 2X/DAY

REACTIONS (3)
  - Off label use [Unknown]
  - Memory impairment [Unknown]
  - Product use issue [Unknown]
